FAERS Safety Report 10960915 (Version 1)
Quarter: 2015Q1

REPORT INFORMATION
  Report Type: Spontaneous
  Country: FR (occurrence: FR)
  Receive Date: 20150327
  Receipt Date: 20150327
  Transmission Date: 20150721
  Serious: Yes (Other)
  Sender: FDA-Public Use
  Company Number: FR-BAXTER-2015BAX015458

PATIENT
  Age: 10 Month
  Sex: Male
  Weight: 11 kg

DRUGS (2)
  1. AMIKACIN [Suspect]
     Active Substance: AMIKACIN
     Indication: PYELONEPHRITIS
     Route: 042
     Dates: start: 20150309, end: 20150309
  2. CHLORURE DE SODIUM 0.9% POUR CENT BAXTER, SOLUTION POUR PERFUSION EN P [Suspect]
     Active Substance: SODIUM CHLORIDE
     Indication: MEDICATION DILUTION
     Route: 065
     Dates: start: 20150309, end: 20150309

REACTIONS (3)
  - Oedema [Recovered/Resolved]
  - Infusion site extravasation [Recovered/Resolved]
  - Erythema [Recovered/Resolved]

NARRATIVE: CASE EVENT DATE: 20150309
